FAERS Safety Report 19722679 (Version 1)
Quarter: 2021Q3

REPORT INFORMATION
  Report Type: Spontaneous
  Country: DE (occurrence: DE)
  Receive Date: 20210819
  Receipt Date: 20210819
  Transmission Date: 20211014
  Serious: Yes (Hospitalization, Other)
  Sender: FDA-Public Use
  Company Number: DE-MYLANLABS-PHBS2007DE12365

PATIENT
  Age: 22 Year
  Sex: Male

DRUGS (2)
  1. ARIPIPRAZOLE. [Concomitant]
     Active Substance: ARIPIPRAZOLE
     Indication: PRODUCT USED FOR UNKNOWN INDICATION
     Dosage: UNK
  2. CLOZAPINE MYLAN [Suspect]
     Active Substance: CLOZAPINE
     Indication: SCHIZOPHRENIA
     Dosage: 350 MILLIGRAM, QD, TAPERED CLOZAPINE
     Route: 048

REACTIONS (10)
  - Heart rate irregular [Recovered/Resolved]
  - Blood immunoglobulin E increased [Recovered/Resolved]
  - Gastrointestinal infection [Recovered/Resolved]
  - Diarrhoea [Recovered/Resolved]
  - Influenza like illness [Recovered/Resolved]
  - Pericarditis [Recovered/Resolved]
  - Eosinophilia [Recovered/Resolved]
  - Pericardial effusion [Recovered/Resolved]
  - Sinus tachycardia [Recovered/Resolved]
  - C-reactive protein increased [Recovered/Resolved]
